FAERS Safety Report 5443727-5 (Version None)
Quarter: 2007Q3

REPORT INFORMATION
  Report Type: 
  Country: None (occurrence: None)
  Receive Date: 20070730
  Receipt Date: 20070223
  Transmission Date: 20080115
  Serious: Yes (Hospitalization)
  Sender: FDA-Public Use
  Company Number: 237179

PATIENT
  Age: 75 Year
  Sex: Male
  Weight: 60.3 kg

DRUGS (2)
  1. RITUXAN [Suspect]
     Indication: NON-HODGKIN'S LYMPHOMA
     Dosage: 904 MG, INTRAVENOUS
     Route: 042
     Dates: start: 20070124
  2. DOXIL [Suspect]
     Indication: NON-HODGKIN'S LYMPHOMA
     Dosage: 72.3 MG, INTRAVENOUS
     Route: 042
     Dates: start: 20070126

REACTIONS (1)
  - DISEASE PROGRESSION [None]
